FAERS Safety Report 7815436-6 (Version None)
Quarter: 2011Q4

REPORT INFORMATION
  Report Type: 
  Country: None (occurrence: None)
  Receive Date: 20111014
  Receipt Date: 20111007
  Transmission Date: 20120403
  Serious: Yes (Hospitalization, Other)
  Sender: FDA-Public Use
  Company Number: PHHY2011US64424

PATIENT
  Sex: Female

DRUGS (3)
  1. PERCOCET [Concomitant]
     Indication: PAIN
     Dosage: 7.5/5 MG
     Dates: start: 20100101, end: 20110707
  2. GILENYA [Suspect]
     Indication: MULTIPLE SCLEROSIS
     Dosage: 0.5 MG, QD
     Route: 048
     Dates: start: 20110701
  3. VALIUM [Concomitant]
     Indication: INSOMNIA
     Dosage: 10 MG, QHS
     Dates: start: 20100101, end: 20110707

REACTIONS (8)
  - CYSTITIS [None]
  - ASTHENOPIA [None]
  - OCULAR HYPERAEMIA [None]
  - EPILEPSY [None]
  - PHOTOPHOBIA [None]
  - HYPERSENSITIVITY [None]
  - CONVULSION [None]
  - SOMNOLENCE [None]
